FAERS Safety Report 23245679 (Version 1)
Quarter: 2023Q4

REPORT INFORMATION
  Report Type: Spontaneous
  Country: US (occurrence: US)
  Receive Date: 20231130
  Receipt Date: 20231130
  Transmission Date: 20240109
  Serious: Yes (Other)
  Sender: FDA-Public Use
  Company Number: US-ELI_LILLY_AND_COMPANY-US202311013315

PATIENT
  Age: 68 Year
  Sex: Male

DRUGS (2)
  1. ERBITUX [Suspect]
     Active Substance: CETUXIMAB
     Indication: Head and neck cancer
     Dosage: 500 MG, WEEKLY (1/W)
     Route: 042
  2. ERBITUX [Suspect]
     Active Substance: CETUXIMAB
     Dosage: 500 MG, WEEKLY (1/W)
     Route: 042

REACTIONS (3)
  - Feeding disorder [Not Recovered/Not Resolved]
  - Hypotension [Not Recovered/Not Resolved]
  - Asthenia [Not Recovered/Not Resolved]

NARRATIVE: CASE EVENT DATE: 20231121
